FAERS Safety Report 9409612 (Version 1)
Quarter: 2013Q3

REPORT INFORMATION
  Report Type: Spontaneous
  Country: TR (occurrence: TR)
  Receive Date: 20130719
  Receipt Date: 20130719
  Transmission Date: 20140515
  Serious: Yes (Other)
  Sender: FDA-Public Use
  Company Number: PHHY2013TR075695

PATIENT
  Age: 76 Year
  Sex: Female

DRUGS (1)
  1. SANDOSTATIN LAR [Suspect]
     Indication: ACROMEGALY
     Dosage: 30 MG, ONCE EVERY 28 DAYS
     Dates: start: 2007

REACTIONS (7)
  - Cardiac failure [Not Recovered/Not Resolved]
  - Cardiac hypertrophy [Not Recovered/Not Resolved]
  - Disease recurrence [Not Recovered/Not Resolved]
  - Movement disorder [Not Recovered/Not Resolved]
  - Synovial disorder [Not Recovered/Not Resolved]
  - Hypoaesthesia [Not Recovered/Not Resolved]
  - Osteoporosis [Not Recovered/Not Resolved]
